FAERS Safety Report 7554861-8 (Version None)
Quarter: 2011Q2

REPORT INFORMATION
  Report Type: 
  Country: None (occurrence: None)
  Receive Date: 20110615
  Receipt Date: 20110615
  Transmission Date: 20111010
  Serious: Yes (Hospitalization)
  Sender: FDA-Public Use
  Company Number: None

PATIENT
  Sex: Male
  Weight: 73.1 kg

DRUGS (4)
  1. VINCRISTINE SULFATE [Suspect]
     Dosage: 2 MG
  2. MERCAPTOPURINE [Suspect]
     Dosage: 135 MG
  3. METHOTREXATE [Suspect]
     Dosage: 50 MG
  4. DEXAMETHASONE [Suspect]
     Dosage: 10 MG

REACTIONS (6)
  - ABDOMINAL PAIN [None]
  - NEUTROPENIA [None]
  - SYNCOPE [None]
  - SEPSIS [None]
  - BACTERAEMIA [None]
  - DYSPNOEA [None]
